FAERS Safety Report 4850145-7 (Version None)
Quarter: 2005Q4

REPORT INFORMATION
  Report Type: 
  Country: None (occurrence: None)
  Receive Date: 20051123
  Receipt Date: 20050411
  Transmission Date: 20060501
  Serious: Yes (Other)
  Sender: FDA-Public Use
  Company Number: 2005037703

PATIENT
  Age: 74 Year
  Sex: Male

DRUGS (4)
  1. LIPITOR [Suspect]
     Indication: LIPIDS INCREASED
     Dosage: (20 MG )
  2. CLOPIDOGREL BISULFATE [Concomitant]
  3. VALSARTAN [Concomitant]
  4. FELODIPINE [Concomitant]

REACTIONS (6)
  - ALANINE AMINOTRANSFERASE INCREASED [None]
  - ALDOLASE INCREASED [None]
  - ASPARTATE AMINOTRANSFERASE INCREASED [None]
  - ASTHENIA [None]
  - BLOOD CREATINE PHOSPHOKINASE INCREASED [None]
  - RHABDOMYOLYSIS [None]
